FAERS Safety Report 18533182 (Version 1)
Quarter: 2020Q4

REPORT INFORMATION
  Report Type: Spontaneous
  Country: US (occurrence: US)
  Receive Date: 20201120
  Receipt Date: 20201120
  Transmission Date: 20210114
  Serious: Yes (Hospitalization)
  Sender: FDA-Public Use
  Company Number: None

PATIENT
  Age: 51 Year
  Sex: Female

DRUGS (6)
  1. ZYRTEC ALLGY TAB 10MG [Concomitant]
     Dates: start: 20200827
  2. CARISOPRODOL TAB 350MG [Concomitant]
     Dates: start: 20200827
  3. VITAMIN D3 TAB 5000UNIT [Concomitant]
     Dates: start: 20200827
  4. ONDANSETRON TAB 8MG [Concomitant]
     Active Substance: ONDANSETRON
     Dates: start: 20200827
  5. IMATINIB MES [Suspect]
     Active Substance: IMATINIB MESYLATE
     Indication: SOFT TISSUE SARCOMA
     Route: 048
     Dates: start: 20180109
  6. FIBERCON TAB 625MG [Concomitant]
     Dates: start: 20200827

REACTIONS (5)
  - Fatigue [None]
  - Diarrhoea [None]
  - Therapy interrupted [None]
  - Nausea [None]
  - Stomatitis [None]

NARRATIVE: CASE EVENT DATE: 20201119
